FAERS Safety Report 18659056 (Version 1)
Quarter: 2020Q4

REPORT INFORMATION
  Report Type: Spontaneous
  Country: FR (occurrence: FR)
  Receive Date: 20201224
  Receipt Date: 20201224
  Transmission Date: 20210114
  Serious: Yes (Hospitalization)
  Sender: FDA-Public Use
  Company Number: FR-ACCORD-211848

PATIENT
  Age: 72 Year
  Sex: Female
  Weight: 53 kg

DRUGS (8)
  1. METHYLPREDNISOLONE MYLAN [Concomitant]
     Active Substance: METHYLPREDNISOLONE
     Indication: PREMEDICATION
     Route: 042
     Dates: start: 20200901, end: 20200901
  2. ONDANSETRON ACCORD [Concomitant]
     Active Substance: ONDANSETRON
     Indication: PREMEDICATION
     Route: 042
     Dates: start: 20200929, end: 20200929
  3. ONDANSETRON ACCORD [Concomitant]
     Active Substance: ONDANSETRON
     Indication: PREMEDICATION
     Route: 042
     Dates: start: 20200901, end: 20200901
  4. OXALIPLATINE ACCORD [Suspect]
     Active Substance: OXALIPLATIN
     Indication: OVARIAN CANCER
     Route: 041
     Dates: start: 20200901, end: 20200901
  5. GEMCITABINE ACCORD [Concomitant]
     Active Substance: GEMCITABINE HYDROCHLORIDE
     Indication: OVARIAN CANCER
     Route: 041
     Dates: start: 20200929, end: 20200929
  6. OXALIPLATINE ACCORD [Suspect]
     Active Substance: OXALIPLATIN
     Indication: OVARIAN CANCER
     Route: 041
     Dates: start: 20200929, end: 20200929
  7. METHYLPREDNISOLONE MYLAN [Concomitant]
     Active Substance: METHYLPREDNISOLONE
     Indication: PREMEDICATION
     Route: 042
     Dates: start: 20200929, end: 20200929
  8. GEMCITABINE ACCORD [Concomitant]
     Active Substance: GEMCITABINE HYDROCHLORIDE
     Indication: OVARIAN CANCER
     Route: 041
     Dates: start: 20200901, end: 20200901

REACTIONS (8)
  - Erythema [Recovered/Resolved]
  - Chills [Recovered/Resolved]
  - Eye oedema [Recovered/Resolved]
  - Infusion related reaction [Recovered/Resolved]
  - Off label use [Unknown]
  - Swollen tongue [Recovered/Resolved]
  - Palpitations [Recovered/Resolved]
  - Paraesthesia [Recovered/Resolved]

NARRATIVE: CASE EVENT DATE: 20200901
